FAERS Safety Report 12521517 (Version 1)
Quarter: 2016Q3

REPORT INFORMATION
  Report Type: Spontaneous
  Country: US (occurrence: US)
  Receive Date: 20160701
  Receipt Date: 20160701
  Transmission Date: 20161109
  Serious: Yes (Other)
  Sender: FDA-Public Use
  Company Number: US-JNJFOC-20160622822

PATIENT
  Age: 54 Year
  Sex: Female
  Weight: 58.97 kg

DRUGS (7)
  1. XOLAIR [Concomitant]
     Active Substance: OMALIZUMAB
     Indication: ASTHMA
     Dosage: 3 INJECTIONS EVERY OTHER WEEK
     Route: 065
  2. SOLU-MEDROL [Concomitant]
     Active Substance: METHYLPREDNISOLONE SODIUM SUCCINATE
     Indication: PREMEDICATION
     Route: 065
     Dates: start: 2016
  3. REMICADE [Suspect]
     Active Substance: INFLIXIMAB
     Indication: COLITIS ULCERATIVE
     Route: 042
     Dates: start: 2016
  4. DEXILANT [Concomitant]
     Active Substance: DEXLANSOPRAZOLE
     Indication: OESOPHAGEAL DISORDER
     Route: 065
  5. SALINE [Concomitant]
     Active Substance: SODIUM CHLORIDE
     Indication: PREMEDICATION
     Route: 065
     Dates: start: 2016
  6. PREDNISONE. [Concomitant]
     Active Substance: PREDNISONE
     Indication: PREMEDICATION
     Dosage: 125
     Route: 065
     Dates: start: 2016
  7. REMICADE [Suspect]
     Active Substance: INFLIXIMAB
     Indication: COLITIS ULCERATIVE
     Route: 042
     Dates: start: 201512

REACTIONS (8)
  - Surgery [Unknown]
  - Viral infection [Recovered/Resolved]
  - Hypersensitivity [Recovered/Resolved]
  - Rash [Recovered/Resolved]
  - Infusion related reaction [Recovered/Resolved]
  - Throat tightness [Recovered/Resolved]
  - Oropharyngeal pain [Recovered/Resolved]
  - Malaise [Recovered/Resolved]

NARRATIVE: CASE EVENT DATE: 201512
